FAERS Safety Report 8473805-8 (Version None)
Quarter: 2012Q2

REPORT INFORMATION
  Report Type: 
  Country: None (occurrence: None)
  Receive Date: 20120628
  Receipt Date: 20111227
  Transmission Date: 20120825
  Serious: Yes (Death, Hospitalization)
  Sender: FDA-Public Use
  Company Number: US-MYLANLABS-2011S1024081

PATIENT
  Age: 57 Year
  Sex: Male

DRUGS (3)
  1. KLONOPIN [Concomitant]
     Route: 048
  2. RISPERDAL [Concomitant]
     Route: 048
  3. CLOZAPINE [Suspect]
     Indication: SCHIZOPHRENIA
     Dosage: 100MG FIVE TIMES A DAY
     Route: 048
     Dates: end: 20110101

REACTIONS (1)
  - CARDIAC DEATH [None]
